FAERS Safety Report 6235296-7 (Version None)
Quarter: 2009Q2

REPORT INFORMATION
  Report Type: 
  Country: None (occurrence: None)
  Receive Date: 20090616
  Receipt Date: 20090608
  Transmission Date: 20091009
  Serious: Yes (Hospitalization)
  Sender: FDA-Public Use
  Company Number: FABR-1000837

PATIENT
  Age: 48 Year
  Sex: Male
  Weight: 80.4 kg

DRUGS (16)
  1. FABRAZYME [Suspect]
     Indication: FABRY'S DISEASE
     Dosage: 80 MG, Q2W, INTRAVENOUS
     Route: 042
     Dates: start: 20030225
  2. ATIVAN [Concomitant]
  3. DILANTIN (PHENYTOIN SODIUM) PROLONGED-RELEASE CAPSULE [Concomitant]
  4. RAMIPRIL (RAMIPRIL) CAPSULE [Concomitant]
  5. NEXIUM (ESOMEPRAZOLE MAGNESIUM) TABLET [Concomitant]
  6. LIPITOR (ATORVASTATIN CALCIU) TABLET [Concomitant]
  7. VENLAFAXINE HYDROCHLORIDE (VENLAFAXINE HYDROCHLORIDE) PROLONGED-RELEAS [Concomitant]
  8. PANTOPRAZOLE SODIUM [Concomitant]
  9. DOMPERIDONE MALEATE (DOMPERIDONE MALEATE) TABLET [Concomitant]
  10. METOPROLOL SUCCINATE [Concomitant]
  11. PLAVIX [Concomitant]
  12. ASPIRIN [Concomitant]
  13. FOLIC ACID [Concomitant]
  14. MULTIVITAMIN [Concomitant]
  15. VITAMIN D [Concomitant]
  16. NITROLINGUAL-PUMPSPRAY (GLYCERYL TRINITRATE) [Concomitant]

REACTIONS (3)
  - CHEST PAIN [None]
  - CORONARY ARTERY DISEASE [None]
  - CORONARY ARTERY OCCLUSION [None]
